FAERS Safety Report 6490465-6 (Version None)
Quarter: 2009Q4

REPORT INFORMATION
  Report Type: 
  Country: None (occurrence: None)
  Receive Date: 20091211
  Receipt Date: 20091203
  Transmission Date: 20100525
  Serious: Yes (Life-Threatening)
  Sender: FDA-Public Use
  Company Number: US-MYLANLABS-2009S1019628

PATIENT
  Age: 47 Year
  Sex: Male
  Weight: 63.5 kg

DRUGS (9)
  1. TOPIRAMATE TABLETS [Suspect]
     Indication: NEURALGIA
     Route: 048
     Dates: start: 20091016, end: 20091022
  2. TOPIRAMATE TABLETS [Suspect]
     Route: 048
     Dates: start: 20091023, end: 20091029
  3. TOPIRAMATE TABLETS [Suspect]
     Route: 048
     Dates: start: 20091030, end: 20091106
  4. TOPIRAMATE TABLETS [Suspect]
     Route: 048
     Dates: start: 20091107, end: 20091111
  5. REYATAZ [Concomitant]
     Indication: ACUTE HIV INFECTION
  6. NORVIR [Concomitant]
     Indication: ACUTE HIV INFECTION
  7. EPZICOM [Concomitant]
     Indication: ACUTE HIV INFECTION
  8. VIRAMUNE [Concomitant]
     Indication: ACUTE HIV INFECTION
  9. OSCAL /00108001/ [Concomitant]

REACTIONS (18)
  - AGRANULOCYTOSIS [None]
  - ASTHENIA [None]
  - CHILLS [None]
  - DECREASED APPETITE [None]
  - DIARRHOEA [None]
  - FACIAL PAIN [None]
  - FATIGUE [None]
  - FOOD AVERSION [None]
  - GINGIVAL BLEEDING [None]
  - GINGIVAL PAIN [None]
  - GINGIVITIS [None]
  - HYPERTHERMIA [None]
  - HYPOVENTILATION [None]
  - MIGRAINE [None]
  - NECK PAIN [None]
  - PARAESTHESIA [None]
  - SWOLLEN TONGUE [None]
  - WHITE BLOOD CELL COUNT DECREASED [None]
